FAERS Safety Report 11044001 (Version 1)
Quarter: 2015Q2

REPORT INFORMATION
  Report Type: Spontaneous
  Country: US (occurrence: None)
  Receive Date: 20150416
  Receipt Date: 20150416
  Transmission Date: 20150821
  Serious: Yes (Other)
  Sender: FDA-Public Use
  Company Number: None

PATIENT
  Age: 68 Year
  Sex: Female

DRUGS (3)
  1. SUTENT [Suspect]
     Active Substance: SUNITINIB MALATE
     Dosage: SUTENT 12.5 CAP  DAILY  PO
     Route: 048
     Dates: start: 20150319, end: 20150414
  2. OCTREOTIDE [Concomitant]
     Active Substance: OCTREOTIDE
  3. SUTENT [Suspect]
     Active Substance: SUNITINIB MALATE
     Dosage: SUTENT 25 CAP DAILY PO
     Route: 048
     Dates: start: 20141111, end: 20150414

REACTIONS (1)
  - Drug ineffective [None]

NARRATIVE: CASE EVENT DATE: 20150414
